FAERS Safety Report 22772308 (Version 3)
Quarter: 2023Q4

REPORT INFORMATION
  Report Type: Report from Study
  Country: AR (occurrence: AR)
  Receive Date: 20230801
  Receipt Date: 20231212
  Transmission Date: 20240110
  Serious: Yes (Other)
  Sender: FDA-Public Use
  Company Number: AR-002147023-NVSC2020AR001873

PATIENT
  Age: 76 Year
  Sex: Male

DRUGS (8)
  1. TAFINLAR [Suspect]
     Active Substance: DABRAFENIB MESYLATE
     Indication: Metastatic malignant melanoma
     Dosage: 300 MG, QD
     Route: 048
     Dates: start: 20191106
  2. TAFINLAR [Suspect]
     Active Substance: DABRAFENIB MESYLATE
     Dosage: 150 MG, QD
     Route: 048
     Dates: start: 20191106
  3. TAFINLAR [Suspect]
     Active Substance: DABRAFENIB MESYLATE
     Dosage: UNK
     Route: 065
     Dates: start: 2019
  4. TAFINLAR [Suspect]
     Active Substance: DABRAFENIB MESYLATE
     Dosage: 150 MG, BID
     Route: 048
     Dates: end: 20220315
  5. TAFINLAR [Suspect]
     Active Substance: DABRAFENIB MESYLATE
     Dosage: UNK (MAY)
     Route: 065
     Dates: end: 20220610
  6. MEKINIST [Suspect]
     Active Substance: TRAMETINIB DIMETHYL SULFOXIDE
     Indication: Metastatic malignant melanoma
     Dosage: 2 MG, QD
     Route: 048
     Dates: start: 20191106, end: 20220315
  7. MEKINIST [Suspect]
     Active Substance: TRAMETINIB DIMETHYL SULFOXIDE
     Dosage: UNK
     Route: 065
     Dates: start: 2019
  8. MEKINIST [Suspect]
     Active Substance: TRAMETINIB DIMETHYL SULFOXIDE
     Dosage: UNK (MAY)
     Route: 065
     Dates: end: 20220610

REACTIONS (14)
  - Melanoma recurrent [Unknown]
  - Metastases to lymph nodes [Unknown]
  - Skin lesion [Unknown]
  - Hepatitis [Unknown]
  - Fluid retention [Not Recovered/Not Resolved]
  - Hypersensitivity [Unknown]
  - Erythema [Not Recovered/Not Resolved]
  - Pyrexia [Recovered/Resolved]
  - Acne pustular [Unknown]
  - Rash [Unknown]
  - Lymphadenopathy [Unknown]
  - Pyrexia [Unknown]
  - Hepatic enzyme abnormal [Unknown]
  - Inappropriate schedule of product administration [Unknown]

NARRATIVE: CASE EVENT DATE: 20220315
